FAERS Safety Report 18288221 (Version 49)
Quarter: 2025Q2

REPORT INFORMATION
  Report Type: Report from Study
  Country: US (occurrence: US)
  Receive Date: 20200921
  Receipt Date: 20250522
  Transmission Date: 20250717
  Serious: Yes (Hospitalization, Other)
  Sender: TAKEDA
  Company Number: US-SHIRE-US202030617

PATIENT
  Age: 58 Year
  Sex: Female
  Weight: 58 kg

DRUGS (71)
  1. HUMAN IMMUNOGLOBULIN G [Suspect]
     Active Substance: HUMAN IMMUNOGLOBULIN G
     Indication: Immunodeficiency common variable
     Dosage: 45 GRAM, Q4WEEKS
     Dates: start: 20090710
  2. HUMAN IMMUNOGLOBULIN G [Suspect]
     Active Substance: HUMAN IMMUNOGLOBULIN G
     Indication: Hypogammaglobulinaemia
     Dosage: 45 GRAM, Q4WEEKS
     Dates: start: 20090807
  3. HUMAN IMMUNOGLOBULIN G [Suspect]
     Active Substance: HUMAN IMMUNOGLOBULIN G
     Indication: IgG deficiency
     Dosage: 45 GRAM, Q4WEEKS
     Dates: start: 20120103
  4. HUMAN IMMUNOGLOBULIN G [Suspect]
     Active Substance: HUMAN IMMUNOGLOBULIN G
     Indication: Primary immunodeficiency syndrome
     Dosage: 45 GRAM, Q4WEEKS
     Dates: start: 20150409
  5. HUMAN IMMUNOGLOBULIN G [Suspect]
     Active Substance: HUMAN IMMUNOGLOBULIN G
     Indication: Immunodeficiency common variable
     Dosage: 45 GRAM, Q4WEEKS
     Dates: start: 20150418
  6. HUMAN IMMUNOGLOBULIN G [Suspect]
     Active Substance: HUMAN IMMUNOGLOBULIN G
     Dosage: 45 GRAM, MONTHLY
  7. HUMAN IMMUNOGLOBULIN G [Suspect]
     Active Substance: HUMAN IMMUNOGLOBULIN G
     Dosage: 10 GRAM, 1/WEEK
  8. HUMAN IMMUNOGLOBULIN G [Suspect]
     Active Substance: HUMAN IMMUNOGLOBULIN G
     Dosage: 45 GRAM, Q4WEEKS
  9. BIAXIN [Suspect]
     Active Substance: CLARITHROMYCIN
     Indication: Product used for unknown indication
  10. NAFCILLIN [Suspect]
     Active Substance: NAFCILLIN SODIUM
     Indication: Product used for unknown indication
  11. PENICILLIN [Suspect]
     Active Substance: PENICILLIN
     Indication: Product used for unknown indication
  12. LEVAQUIN [Suspect]
     Active Substance: LEVOFLOXACIN
     Indication: Localised infection
  13. GLIPIZIDE [Suspect]
     Active Substance: GLIPIZIDE
     Indication: Product used for unknown indication
  14. DIPHENHYDRAMINE HYDROCHLORIDE [Concomitant]
     Active Substance: DIPHENHYDRAMINE HYDROCHLORIDE
  15. NEURONTIN [Concomitant]
     Active Substance: GABAPENTIN
  16. PROPRANOLOL HYDROCHLORIDE [Concomitant]
     Active Substance: PROPRANOLOL HYDROCHLORIDE
  17. CYANOCOBALAMIN [Concomitant]
     Active Substance: CYANOCOBALAMIN
  18. SUMATRIPTAN SUCCINATE [Concomitant]
     Active Substance: SUMATRIPTAN SUCCINATE
  19. ACETAMINOPHEN\HYDROCODONE [Concomitant]
     Active Substance: ACETAMINOPHEN\HYDROCODONE
  20. EPINEPHRINE [Concomitant]
     Active Substance: EPINEPHRINE
  21. SODIUM CHLORIDE [Concomitant]
     Active Substance: SODIUM CHLORIDE
  22. BACTRIM [Concomitant]
     Active Substance: SULFAMETHOXAZOLE\TRIMETHOPRIM
  23. LIDOCAINE\PRILOCAINE [Concomitant]
     Active Substance: LIDOCAINE\PRILOCAINE
  24. LASIX [Concomitant]
     Active Substance: FUROSEMIDE
  25. DICYCLOMINE HYDROCHLORIDE [Concomitant]
     Active Substance: DICYCLOMINE HYDROCHLORIDE
  26. ATORVASTATIN CALCIUM [Concomitant]
     Active Substance: ATORVASTATIN CALCIUM
  27. POTASSIUM CHLORIDE [Concomitant]
     Active Substance: POTASSIUM CHLORIDE
  28. BIOTIN [Concomitant]
     Active Substance: BIOTIN
  29. NORTRIPTYLINE HYDROCHLORIDE [Concomitant]
     Active Substance: NORTRIPTYLINE HYDROCHLORIDE
  30. PROMETHAZINE HYDROCHLORIDE [Concomitant]
     Active Substance: PROMETHAZINE HYDROCHLORIDE
  31. SODIUM CHLORIDE [Concomitant]
     Active Substance: SODIUM CHLORIDE
  32. DIPHENHYDRAMINE [Concomitant]
     Active Substance: DIPHENHYDRAMINE
  33. BACLOFEN [Concomitant]
     Active Substance: BACLOFEN
  34. BENTYL [Concomitant]
     Active Substance: DICYCLOMINE HYDROCHLORIDE
  35. ALEVE [Concomitant]
     Active Substance: NAPROXEN SODIUM
  36. BANOPHEN [Concomitant]
     Active Substance: DIPHENHYDRAMINE HYDROCHLORIDE
  37. HYDROCHLOROTHIAZIDE\TRIAMTERENE [Concomitant]
     Active Substance: HYDROCHLOROTHIAZIDE\TRIAMTERENE
  38. METFORMIN HYDROCHLORIDE [Concomitant]
     Active Substance: METFORMIN HYDROCHLORIDE
  39. WELLBUTRIN [Concomitant]
     Active Substance: BUPROPION HYDROCHLORIDE
  40. CYCLOBENZAPRINE HYDROCHLORIDE [Concomitant]
     Active Substance: CYCLOBENZAPRINE HYDROCHLORIDE
  41. IBUPROFEN [Concomitant]
     Active Substance: IBUPROFEN
  42. ASPIRIN [Concomitant]
     Active Substance: ASPIRIN
  43. SUSTENEX [Concomitant]
  44. BAYER ASPIRIN [Concomitant]
     Active Substance: ASPIRIN
  45. HYDROCODONE [Concomitant]
     Active Substance: HYDROCODONE
  46. ACETAMINOPHEN [Concomitant]
     Active Substance: ACETAMINOPHEN
  47. VITAMIN B12 [Concomitant]
     Active Substance: CYANOCOBALAMIN
  48. MACROBID [Concomitant]
     Active Substance: NITROFURANTOIN\NITROFURANTOIN MONOHYDRATE
  49. ULTRAM [Concomitant]
     Active Substance: TRAMADOL HYDROCHLORIDE
  50. VICKS DAYQUIL SEVERE COLD AND FLU [Concomitant]
     Active Substance: ACETAMINOPHEN\DEXTROMETHORPHAN HYDROBROMIDE\GUAIFENESIN\PHENYLEPHRINE HYDROCHLORIDE
     Indication: Sinusitis
  51. PEPCID [Concomitant]
     Active Substance: FAMOTIDINE
  52. VITAMIN B COMPLEX [Concomitant]
     Active Substance: CYANOCOBALAMIN\DEXPANTHENOL\NIACINAMIDE\PYRIDOXINE HYDROCHLORIDE\RIBOFLAVIN 5^-PHOSPHATE SODIUM\THIA
  53. METOCLOPRAMIDE [Concomitant]
     Active Substance: METOCLOPRAMIDE
  54. IMODIUM [Concomitant]
     Active Substance: LOPERAMIDE HYDROCHLORIDE
  55. SUDAFED [Concomitant]
     Active Substance: PSEUDOEPHEDRINE HYDROCHLORIDE
  56. DIFLUCAN [Concomitant]
     Active Substance: FLUCONAZOLE
  57. LINEZOLID [Concomitant]
     Active Substance: LINEZOLID
  58. METOCLOPRAMIDE HYDROCHLORIDE [Concomitant]
     Active Substance: METOCLOPRAMIDE HYDROCHLORIDE
  59. ASPIRIN [Concomitant]
     Active Substance: ASPIRIN
  60. HEPARIN [Concomitant]
     Active Substance: HEPARIN SODIUM
  61. NEURONTIN [Concomitant]
     Active Substance: GABAPENTIN
  62. HERCEPTIN [Concomitant]
     Active Substance: TRASTUZUMAB
  63. PENTOXIFYLLINE [Concomitant]
     Active Substance: PENTOXIFYLLINE
  64. VITAMIN D3 [Concomitant]
     Active Substance: CHOLECALCIFEROL
  65. VITAMIN E [Concomitant]
     Active Substance: .ALPHA.-TOCOPHEROL
  66. PROMETHAZINE HYDROCHLORIDE [Concomitant]
     Active Substance: PROMETHAZINE HYDROCHLORIDE
  67. LETROZOLE [Concomitant]
     Active Substance: LETROZOLE
  68. NORVASC [Concomitant]
     Active Substance: AMLODIPINE BESYLATE
  69. OGIVRI [Concomitant]
     Active Substance: TRASTUZUMAB-DKST
  70. TRAMADOL HCL [Concomitant]
     Active Substance: TRAMADOL HYDROCHLORIDE
  71. OZEMPIC [Concomitant]
     Active Substance: SEMAGLUTIDE

REACTIONS (52)
  - Escherichia urinary tract infection [Unknown]
  - Systemic infection [Unknown]
  - Staphylococcal infection [Not Recovered/Not Resolved]
  - Confusional state [Unknown]
  - Wound infection [Unknown]
  - Bronchitis [Not Recovered/Not Resolved]
  - Ankle fracture [Recovered/Resolved]
  - Fall [Unknown]
  - Blood glucose decreased [Unknown]
  - Road traffic accident [Unknown]
  - Limb injury [Unknown]
  - Lower limb fracture [Unknown]
  - Drug hypersensitivity [Unknown]
  - Intestinal sepsis [Unknown]
  - Immune system disorder [Unknown]
  - Arthritis infective [Unknown]
  - Clostridium difficile infection [Unknown]
  - Joint abscess [Recovering/Resolving]
  - Illness [Unknown]
  - Gastrointestinal infection [Unknown]
  - Infection [Recovered/Resolved]
  - Diabetes mellitus [Unknown]
  - Sepsis [Recovered/Resolved]
  - Kidney infection [Not Recovered/Not Resolved]
  - Systemic lupus erythematosus [Unknown]
  - Rheumatoid arthritis [Unknown]
  - Postoperative wound infection [Unknown]
  - Impaired gastric emptying [Unknown]
  - Encephalitis [Recovered/Resolved]
  - Loss of consciousness [Unknown]
  - Sinusitis [Not Recovered/Not Resolved]
  - Abscess limb [Unknown]
  - Breast cancer [Unknown]
  - Allergic sinusitis [Unknown]
  - Foot fracture [Unknown]
  - Infusion related reaction [Unknown]
  - Urinary tract infection [Unknown]
  - Weight decreased [Unknown]
  - Post procedural complication [Unknown]
  - Limb discomfort [Unknown]
  - Scratch [Unknown]
  - Respiratory tract infection [Unknown]
  - Arthropathy [Unknown]
  - Post procedural infection [Unknown]
  - Influenza [Unknown]
  - Upper respiratory tract infection [Unknown]
  - Urticaria [Unknown]
  - Dizziness [Unknown]
  - Extra dose administered [Unknown]
  - Joint injury [Unknown]
  - Nasopharyngitis [Not Recovered/Not Resolved]
  - Arthralgia [Unknown]

NARRATIVE: CASE EVENT DATE: 20220209
